FAERS Safety Report 14740276 (Version 2)
Quarter: 2018Q4

REPORT INFORMATION
  Report Type: Spontaneous
  Country: DE (occurrence: DE)
  Receive Date: 20180410
  Receipt Date: 20181017
  Transmission Date: 20190204
  Serious: Yes (Other)
  Sender: FDA-Public Use
  Company Number: PHHY2016DE185766

PATIENT
  Age: 71 Year
  Sex: Male

DRUGS (31)
  1. IRINOTECAN [Suspect]
     Active Substance: IRINOTECAN
     Dosage: 272 MG, BIW
     Route: 042
     Dates: start: 20160314, end: 20160314
  2. IRINOTECAN [Suspect]
     Active Substance: IRINOTECAN
     Dosage: 272 MG, BIW
     Route: 042
     Dates: start: 20160627, end: 20160627
  3. AVASTIN [Suspect]
     Active Substance: BEVACIZUMAB
     Indication: COLORECTAL CANCER
     Dosage: 420 MG, BIW
     Route: 042
     Dates: start: 20160224
  4. FOLINIC ACID [Concomitant]
     Active Substance: LEUCOVORIN
     Dosage: 808 MG, Q2W
     Route: 042
     Dates: start: 20160222
  5. FOLINIC ACID [Concomitant]
     Active Substance: LEUCOVORIN
     Dosage: 606 MG, Q2W
     Route: 042
     Dates: start: 20160330, end: 20160330
  6. FOLINIC ACID [Concomitant]
     Active Substance: LEUCOVORIN
     Dosage: 606 MG, Q2W
     Route: 042
     Dates: start: 20160627, end: 20160627
  7. 5-FLUOROURACIL [Suspect]
     Active Substance: FLUOROURACIL
     Dosage: 606 MG, BIW
     Route: 041
     Dates: start: 20160430, end: 20160430
  8. 5-FLUOROURACIL [Suspect]
     Active Substance: FLUOROURACIL
     Dosage: 612 MG, BIW
     Route: 040
     Dates: start: 20160711
  9. IRINOTECAN [Suspect]
     Active Substance: IRINOTECAN
     Dosage: 270 MG, BIW
     Route: 042
  10. 5-FLUOROURACIL [Suspect]
     Active Substance: FLUOROURACIL
     Dosage: 606 MG, BIW
     Route: 040
     Dates: start: 20160314, end: 20160314
  11. IRINOTECAN [Suspect]
     Active Substance: IRINOTECAN
     Indication: COLORECTAL CANCER
     Dosage: 272 MG, BIW
     Route: 042
     Dates: start: 20160208, end: 20160208
  12. IRINOTECAN [Suspect]
     Active Substance: IRINOTECAN
     Dosage: 275 MG, BIW
     Route: 042
     Dates: start: 20160711
  13. VALSARTAN. [Concomitant]
     Active Substance: VALSARTAN
     Indication: HYPERTENSION
     Dosage: 80 MG, QD
     Route: 048
  14. OXALIPLATIN. [Concomitant]
     Active Substance: OXALIPLATIN
     Indication: COLORECTAL CANCER
     Dosage: 129 MG, Q2W
     Route: 065
     Dates: start: 20160919, end: 20160919
  15. 5-FLUOROURACIL [Suspect]
     Active Substance: FLUOROURACIL
     Dosage: 600 MG, BIW
     Route: 040
     Dates: start: 20160411, end: 20160411
  16. 5-FLUOROURACIL [Suspect]
     Active Substance: FLUOROURACIL
     Dosage: 600 MG, BIW
     Route: 040
     Dates: start: 20160425, end: 20160425
  17. 5-FLUOROURACIL [Suspect]
     Active Substance: FLUOROURACIL
     Dosage: 606 MG, BIW
     Route: 040
     Dates: start: 20160627, end: 20160627
  18. IRINOTECAN [Suspect]
     Active Substance: IRINOTECAN
     Dosage: 270 MG, BIW
     Route: 042
     Dates: start: 20160411, end: 20160411
  19. AVASTIN [Suspect]
     Active Substance: BEVACIZUMAB
     Dosage: 420 MG, BIW
     Route: 042
     Dates: start: 20160615, end: 20160615
  20. FOLINIC ACID [Concomitant]
     Active Substance: LEUCOVORIN
     Dosage: 606 MG, Q2W
     Route: 042
     Dates: start: 20160314, end: 20160314
  21. FOLINIC ACID [Concomitant]
     Active Substance: LEUCOVORIN
     Dosage: 600 MG, Q2W
     Route: 042
     Dates: start: 20160425, end: 20160425
  22. 5-FLUOROURACIL [Suspect]
     Active Substance: FLUOROURACIL
     Dosage: 808 MG, BIW
     Route: 040
     Dates: start: 20160222
  23. IRINOTECAN [Suspect]
     Active Substance: IRINOTECAN
     Dosage: 363 MG, BIW
     Route: 042
     Dates: start: 20160222, end: 20160222
  24. FOLINIC ACID [Concomitant]
     Active Substance: LEUCOVORIN
     Dosage: 600 MG, Q2W
     Route: 042
     Dates: start: 20160411, end: 20160411
  25. 5-FLUOROURACIL [Suspect]
     Active Substance: FLUOROURACIL
     Dosage: 606 MG, BIW
     Route: 041
     Dates: start: 20160613, end: 20160613
  26. IRINOTECAN [Suspect]
     Active Substance: IRINOTECAN
     Dosage: 272 MG, BIW
     Route: 042
     Dates: start: 20160330, end: 20160330
  27. 5-FLUOROURACIL [Suspect]
     Active Substance: FLUOROURACIL
     Indication: COLORECTAL CANCER
     Dosage: 1 DF, QW (DOSAGES BETWEEN 600 MG AND 800 MG)
     Route: 040
     Dates: start: 20160208, end: 20160208
  28. IRINOTECAN [Suspect]
     Active Substance: IRINOTECAN
     Dosage: 270 MG, BIW
     Route: 042
     Dates: start: 20160425, end: 20160425
  29. IRINOTECAN [Suspect]
     Active Substance: IRINOTECAN
     Dosage: 272 MG, BIW
     Route: 042
     Dates: start: 20160613, end: 20160613
  30. FOLINIC ACID [Concomitant]
     Active Substance: LEUCOVORIN
     Indication: COLORECTAL CANCER
     Dosage: 600 MG, QW
     Route: 042
     Dates: start: 20160208, end: 20160208
  31. FOLINIC ACID [Concomitant]
     Active Substance: LEUCOVORIN
     Dosage: 612 MG, Q2W
     Route: 042
     Dates: start: 20160711

REACTIONS (4)
  - Epistaxis [Recovered/Resolved]
  - Off label use [Unknown]
  - Neutropenia [Recovered/Resolved]
  - Inappropriate schedule of product administration [Unknown]

NARRATIVE: CASE EVENT DATE: 20160307
